FAERS Safety Report 4891854-3 (Version None)
Quarter: 2006Q1

REPORT INFORMATION
  Report Type: 
  Country: None (occurrence: None)
  Receive Date: 20060123
  Receipt Date: 20060113
  Transmission Date: 20060701
  Serious: Yes (Hospitalization)
  Sender: FDA-Public Use
  Company Number: FR200601001961

PATIENT
  Age: 38 Year
  Sex: Male
  Weight: 87 kg

DRUGS (9)
  1. ZYPREXA [Suspect]
     Dosage: ORAL
     Route: 048
     Dates: start: 20050101
  2. ESCITALOIPRAM (ESCITALOPRAM) [Concomitant]
  3. XANAX /USA/ (ALPRAZOLAM) [Concomitant]
  4. CORTANCYL  /FRA/ (PREDNISONE) [Concomitant]
  5. TERCIAN (CYAMEMAZINE) [Concomitant]
  6. VICTAN (ETHYL LOFLAZEPATE) [Concomitant]
  7. STINOX  /FRA/(ZOLPIDEM) [Concomitant]
  8. ESOMEPRAZOLE (ESOMEPRAZOLE) [Concomitant]
  9. VASTAREL ^SERVIER^ (TRIMETAZINE HYDROCHLORIDE) [Concomitant]

REACTIONS (5)
  - ARTERIAL THROMBOSIS [None]
  - HYPERCHOLESTEROLAEMIA [None]
  - HYPERTRIGLYCERIDAEMIA [None]
  - PULMONARY EMBOLISM [None]
  - RHEUMATOID ARTHRITIS [None]
